FAERS Safety Report 5619199-4 (Version None)
Quarter: 2008Q1

REPORT INFORMATION
  Report Type: 
  Country: None (occurrence: None)
  Receive Date: 20080207
  Receipt Date: 20080131
  Transmission Date: 20080703
  Serious: Yes (Hospitalization)
  Sender: FDA-Public Use
  Company Number: US-GENENTECH-254244

PATIENT
  Sex: Female
  Weight: 89.342 kg

DRUGS (10)
  1. XOLAIR [Suspect]
     Indication: ASTHMA
     Dosage: 225 MG, Q2W
     Route: 058
     Dates: start: 20080110
  2. ALBUTEROL [Concomitant]
     Indication: DYSPNOEA
     Dosage: 2 PUFF, PRN
     Route: 048
     Dates: start: 20071106
  3. EPIPEN [Concomitant]
     Indication: HYPERSENSITIVITY
     Dosage: 0.3 A?G, PRN
     Route: 058
     Dates: start: 20080103
  4. FLONASE [Concomitant]
     Indication: DRUG USE FOR UNKNOWN INDICATION
  5. IPRATROPIUM BROMIDE [Concomitant]
     Indication: DRUG USE FOR UNKNOWN INDICATION
  6. PREDNISONE TAB [Concomitant]
     Indication: DRUG USE FOR UNKNOWN INDICATION
  7. PRILOSEC [Concomitant]
     Indication: DRUG USE FOR UNKNOWN INDICATION
  8. SINGULAIR [Concomitant]
     Indication: DRUG USE FOR UNKNOWN INDICATION
  9. SYMBICORT [Concomitant]
     Indication: DRUG USE FOR UNKNOWN INDICATION
  10. XOPENEX [Concomitant]
     Indication: DYSPNOEA
     Dosage: 1.25 MG, PRN
     Dates: start: 20071106

REACTIONS (4)
  - CHEST DISCOMFORT [None]
  - DYSPNOEA [None]
  - HYPERSENSITIVITY [None]
  - PRURITUS GENERALISED [None]
